FAERS Safety Report 10303496 (Version 1)
Quarter: 2014Q3

REPORT INFORMATION
  Report Type: Spontaneous
  Country: US (occurrence: US)
  Receive Date: 20140714
  Receipt Date: 20140714
  Transmission Date: 20150326
  Serious: Yes (Death, Congenital Anomaly)
  Sender: FDA-Public Use
  Company Number: US-ELI_LILLY_AND_COMPANY-US201407004076

PATIENT

DRUGS (1)
  1. FLUOXETINE HYDROCHLORIDE. [Suspect]
     Active Substance: FLUOXETINE HYDROCHLORIDE
     Indication: PRODUCT USED FOR UNKNOWN INDICATION
     Route: 064

REACTIONS (10)
  - Tricuspid valve incompetence [Unknown]
  - Bundle branch block left [Unknown]
  - Myopathy [Unknown]
  - Death [Fatal]
  - Cardiomyopathy [Unknown]
  - Foetal exposure during pregnancy [Recovered/Resolved]
  - Sleep apnoea syndrome [Unknown]
  - Left ventricular dysfunction [Unknown]
  - Cardiac failure congestive [Unknown]
  - Mitochondrial myopathy [Unknown]
